FAERS Safety Report 17107231 (Version 1)
Quarter: 2019Q4

REPORT INFORMATION
  Report Type: Spontaneous
  Country: PL (occurrence: PL)
  Receive Date: 20191203
  Receipt Date: 20191203
  Transmission Date: 20200122
  Serious: Yes (Hospitalization)
  Sender: FDA-Public Use
  Company Number: PL-MYLANLABS-2019M1116174

PATIENT
  Age: 56 Year
  Sex: Female

DRUGS (6)
  1. CELECOXIB. [Interacting]
     Active Substance: CELECOXIB
     Indication: BACK PAIN
     Dosage: 400 MILLIGRAM
  2. OMEPRAZOLE. [Suspect]
     Active Substance: OMEPRAZOLE
     Indication: BACK PAIN
     Dosage: 40 MILLIGRAM
  3. HYDROXYZINE [Concomitant]
     Active Substance: HYDROXYZINE HYDROCHLORIDE
     Indication: INSOMNIA
     Dosage: 25 MILLIGRAM
  4. SERTRALINE [Interacting]
     Active Substance: SERTRALINE HYDROCHLORIDE
     Indication: DEPRESSION
     Dosage: 100 MILLIGRAM
  5. INDAPAMIDE. [Concomitant]
     Active Substance: INDAPAMIDE
     Indication: HYPERTENSION
     Dosage: 1.5 MILLIGRAM
  6. ENALAPRIL [Concomitant]
     Active Substance: ENALAPRIL
     Indication: HYPERTENSION
     Dosage: 20 MILLIGRAM

REACTIONS (3)
  - Drug interaction [Recovering/Resolving]
  - Burning mouth syndrome [Recovered/Resolved]
  - Iron deficiency [Unknown]
